FAERS Safety Report 13960282 (Version 6)
Quarter: 2019Q4

REPORT INFORMATION
  Report Type: Report from Study
  Country: JP (occurrence: JP)
  Receive Date: 20170912
  Receipt Date: 20191128
  Transmission Date: 20200122
  Serious: Yes (Death, Life-Threatening, Hospitalization)
  Sender: FDA-Public Use
  Company Number: JP-ACTELION-A-CH2017-156977

PATIENT
  Age: 55 Year
  Sex: Male

DRUGS (6)
  1. RIOCIGUAT. [Concomitant]
     Active Substance: RIOCIGUAT
  2. BERAPROST NA [Concomitant]
     Active Substance: BERAPROST SODIUM
  3. FUROSEMIDE. [Concomitant]
     Active Substance: FUROSEMIDE
  4. OPSUMIT [Suspect]
     Active Substance: MACITENTAN
     Indication: PULMONARY ARTERIAL HYPERTENSION
     Dosage: 10 MG, QD
     Route: 048
     Dates: start: 20161004, end: 20190906
  5. OXYGEN. [Concomitant]
     Active Substance: OXYGEN
  6. MORPHINE HYDROCHLORIDE [Concomitant]
     Active Substance: MORPHINE HYDROCHLORIDE

REACTIONS (9)
  - Pulmonary congestion [Fatal]
  - Right-to-left cardiac shunt [Fatal]
  - Multiple organ dysfunction syndrome [Fatal]
  - Acute respiratory failure [Recovering/Resolving]
  - Pneumonia [Recovering/Resolving]
  - Cardiac failure acute [Fatal]
  - Ventricular septal defect [Fatal]
  - Influenza [Recovering/Resolving]
  - Dyspnoea [Fatal]

NARRATIVE: CASE EVENT DATE: 20161129
